FAERS Safety Report 8606016-3 (Version None)
Quarter: 2012Q3

REPORT INFORMATION
  Report Type: 
  Country: None (occurrence: None)
  Receive Date: 20120820
  Receipt Date: 19891009
  Transmission Date: 20120928
  Serious: Yes (Other)
  Sender: FDA-Public Use
  Company Number: US-ROCHE-1098675

PATIENT
  Age: 44 Year
  Sex: Male

DRUGS (4)
  1. ACTIVASE [Suspect]
     Indication: ACUTE MYOCARDIAL INFARCTION
  2. NITROGLYCERIN [Concomitant]
  3. DEXTROSE 5% WATER [Concomitant]
  4. XYLOCAINE [Concomitant]

REACTIONS (1)
  - CHEST PAIN [None]
